FAERS Safety Report 12497330 (Version 5)
Quarter: 2016Q4

REPORT INFORMATION
  Report Type: Spontaneous
  Country: CA (occurrence: CA)
  Receive Date: 20160624
  Receipt Date: 20161114
  Transmission Date: 20170207
  Serious: Yes (Other)
  Sender: FDA-Public Use
  Company Number: CA-BAYER-2016-117679

PATIENT
  Sex: Male

DRUGS (5)
  1. KOGENATE FS [Suspect]
     Active Substance: ANTIHEMOPHILIC FACTOR, HUMAN RECOMBINANT
     Indication: FACTOR VIII DEFICIENCY
     Dosage: UNK
  2. KOGENATE FS [Suspect]
     Active Substance: ANTIHEMOPHILIC FACTOR, HUMAN RECOMBINANT
     Indication: FACTOR VIII DEFICIENCY
     Dosage: 2000 IU, QD
     Dates: start: 20160222, end: 201606
  3. KOGENATE FS [Suspect]
     Active Substance: ANTIHEMOPHILIC FACTOR, HUMAN RECOMBINANT
     Indication: FACTOR VIII DEFICIENCY
     Dosage: 1000 IU, QD
     Dates: start: 201607
  4. KOGENATE FS [Suspect]
     Active Substance: ANTIHEMOPHILIC FACTOR, HUMAN RECOMBINANT
     Indication: FACTOR VIII DEFICIENCY
     Dosage: 2000 IU, QD
     Dates: start: 20160222, end: 201606
  5. HARVONI [Concomitant]
     Active Substance: LEDIPASVIR\SOFOSBUVIR
     Dosage: UNK
     Dates: start: 201503, end: 201504

REACTIONS (8)
  - Drug effect decreased [None]
  - Myocardial infarction [None]
  - Arthralgia [Recovering/Resolving]
  - Haemarthrosis [Recovering/Resolving]
  - Product measured potency issue [None]
  - Transient ischaemic attack [None]
  - Anaphylactic reaction [None]
  - Haemarthrosis [Recovering/Resolving]

NARRATIVE: CASE EVENT DATE: 201503
